FAERS Safety Report 23001804 (Version 2)
Quarter: 2023Q4

REPORT INFORMATION
  Report Type: Spontaneous
  Country: CN (occurrence: None)
  Receive Date: 20230928
  Receipt Date: 20231016
  Transmission Date: 20240110
  Serious: Yes (Death)
  Sender: FDA-Public Use
  Company Number: 2023A217346

PATIENT
  Age: 59 Year
  Sex: Male
  Weight: 59 kg

DRUGS (4)
  1. IMFINZI [Suspect]
     Active Substance: DURVALUMAB
     Indication: Small cell lung cancer extensive stage
     Dosage: 1000 MG/PERIOD1000.0MG UNKNOWN
     Route: 042
     Dates: start: 20230518
  2. CARBOPLATIN [Concomitant]
     Active Substance: CARBOPLATIN
     Indication: Small cell lung cancer extensive stage
  3. CISPLATIN [Concomitant]
     Active Substance: CISPLATIN
     Indication: Small cell lung cancer extensive stage
  4. ETOPOSIDE [Concomitant]
     Active Substance: ETOPOSIDE
     Indication: Small cell lung cancer extensive stage

REACTIONS (2)
  - Liver injury [Fatal]
  - Drug ineffective [Fatal]
